FAERS Safety Report 7423260-1 (Version None)
Quarter: 2011Q2

REPORT INFORMATION
  Report Type: 
  Country: None (occurrence: None)
  Receive Date: 20110413
  Receipt Date: 20110413
  Transmission Date: 20111010
  Serious: Yes (Hospitalization)
  Sender: FDA-Public Use
  Company Number: None

PATIENT
  Sex: Male
  Weight: 67 kg

DRUGS (6)
  1. ETOPOSIDE [Suspect]
     Dosage: 360 MG
  2. PREDNISONE [Suspect]
     Dosage: 1100 MG
  3. CYCLOPHOSPHAMIDE [Suspect]
     Dosage: 1370 MG
  4. DOXORUBICIN HCL [Suspect]
     Dosage: 72 MG
  5. VINCRISTINE SULFATE [Suspect]
     Dosage: 2.8 MG
  6. RITUXIMAB (MOAB C2B8 ANTI CD20, CHIMERIC) [Suspect]
     Dosage: 690 MG

REACTIONS (18)
  - DYSPHAGIA [None]
  - DEHYDRATION [None]
  - FATIGUE [None]
  - PERFORMANCE STATUS DECREASED [None]
  - ANAEMIA [None]
  - THROMBOCYTOPENIA [None]
  - MUCOSAL INFLAMMATION [None]
  - HYPOTENSION [None]
  - CHEST X-RAY ABNORMAL [None]
  - BODY TEMPERATURE INCREASED [None]
  - ORAL CANDIDIASIS [None]
  - CATHETER SITE SWELLING [None]
  - MALNUTRITION [None]
  - NEUTROPENIA [None]
  - PNEUMONIA [None]
  - ATELECTASIS [None]
  - HICCUPS [None]
  - INFECTION [None]
